FAERS Safety Report 25827104 (Version 1)
Quarter: 2025Q3

REPORT INFORMATION
  Report Type: Spontaneous
  Country: US (occurrence: US)
  Receive Date: 20250920
  Receipt Date: 20250920
  Transmission Date: 20251021
  Serious: No
  Sender: NOVARTIS
  Company Number: US-002147023-NVSC2025US146139

PATIENT
  Sex: Female
  Weight: 68 kg

DRUGS (1)
  1. VANRAFIA [Suspect]
     Active Substance: ATRASENTAN HYDROCHLORIDE
     Indication: Immunoglobulins
     Route: 048
     Dates: start: 20250807

REACTIONS (1)
  - Panic attack [Unknown]
